FAERS Safety Report 17280836 (Version 1)
Quarter: 2020Q1

REPORT INFORMATION
  Report Type: Spontaneous
  Country: CZ (occurrence: CZ)
  Receive Date: 20200117
  Receipt Date: 20200117
  Transmission Date: 20200409
  Serious: Yes (Hospitalization)
  Sender: FDA-Public Use
  Company Number: CZ-CELLTRION INC.-2019CZ027392

PATIENT

DRUGS (5)
  1. METHYLPREDNISOLONE [METHYLPREDNISOLONE ACETATE] [Suspect]
     Active Substance: METHYLPREDNISOLONE ACETATE
     Indication: WARM TYPE HAEMOLYTIC ANAEMIA
     Dosage: 15 MG/KG FOR THREE CONSECUTIVE DAYS
     Route: 042
  2. SIROLIMUS. [Suspect]
     Active Substance: SIROLIMUS
     Indication: WARM TYPE HAEMOLYTIC ANAEMIA
     Dosage: 2 MG/M2
  3. PREDNISONE. [Suspect]
     Active Substance: PREDNISONE
     Indication: WARM TYPE HAEMOLYTIC ANAEMIA
     Route: 048
  4. RITUXIMAB (UNKNOWN) [Suspect]
     Active Substance: RITUXIMAB
     Indication: WARM TYPE HAEMOLYTIC ANAEMIA
     Dosage: 375 MG/M2 TWO COURSES FOR FOUR CONSECUTIVE WEEKS
  5. RITUXIMAB (UNKNOWN) [Suspect]
     Active Substance: RITUXIMAB
     Dosage: 375 MG/M2 TWO COURSES FOR FOUR CONSECUTIVE WEEKS

REACTIONS (6)
  - Blood cholesterol increased [Unknown]
  - Blood triglycerides increased [Unknown]
  - Product use issue [Unknown]
  - Transaminases increased [Unknown]
  - Febrile infection [Unknown]
  - Off label use [Unknown]
